FAERS Safety Report 24937421 (Version 1)
Quarter: 2025Q1

REPORT INFORMATION
  Report Type: Report from Study
  Country: US (occurrence: US)
  Receive Date: 20250206
  Receipt Date: 20250206
  Transmission Date: 20250409
  Serious: Yes (Other)
  Sender: GRIFOLS
  Company Number: US-IGSA-BIG0028541

PATIENT
  Age: 1 Year
  Sex: Male

DRUGS (4)
  1. ALPHANINE SD [Suspect]
     Active Substance: COAGULATION FACTOR IX HUMAN
     Indication: Factor IX deficiency
     Dosage: 600 INTERNATIONAL UNIT, QD
     Route: 042
     Dates: start: 202404
  2. ALPHANINE SD [Suspect]
     Active Substance: COAGULATION FACTOR IX HUMAN
     Dosage: 600 UNKNOWN, QD
     Route: 042
     Dates: start: 202207
  3. LIDOCAINE [Concomitant]
     Active Substance: LIDOCAINE
  4. DEVICE\POLYURETHANE [Concomitant]
     Active Substance: DEVICE\POLYURETHANE

REACTIONS (5)
  - Hyperhidrosis [Unknown]
  - Vomiting [Unknown]
  - Loss of consciousness [Unknown]
  - Rash vesicular [Unknown]
  - Anti factor IX antibody increased [Unknown]

NARRATIVE: CASE EVENT DATE: 20240401
